FAERS Safety Report 12975220 (Version 1)
Quarter: 2016Q4

REPORT INFORMATION
  Report Type: Spontaneous
  Country: US (occurrence: US)
  Receive Date: 20161123
  Receipt Date: 20161123
  Transmission Date: 20170207
  Serious: Yes (Life-Threatening, Other)
  Sender: FDA-Public Use
  Company Number: None

PATIENT
  Age: 26 Year
  Sex: Female
  Weight: 53.1 kg

DRUGS (10)
  1. DOXYCYCLINE. [Concomitant]
     Active Substance: DOXYCYCLINE
  2. MACROBID [Suspect]
     Active Substance: NITROFURANTOIN\NITROFURANTOIN MONOHYDRATE
     Indication: URINARY TRACT INFECTION
     Dosage: ?          QUANTITY:1 CAPSULE(S);?
     Route: 048
     Dates: start: 20161120, end: 20161121
  3. CALCIUM [Concomitant]
     Active Substance: CALCIUM
  4. DAILY ALLERGY PILLS [Concomitant]
  5. D-3 [Concomitant]
     Active Substance: CHOLECALCIFEROL
  6. VITAMIN B12 [Concomitant]
     Active Substance: CYANOCOBALAMIN
  7. SULFA [Concomitant]
     Active Substance: UNSPECIFIED INGREDIENT
  8. PENICILLIN [Concomitant]
     Active Substance: PENICILLIN
  9. BIRTH CONTROL PILLS [Concomitant]
     Active Substance: UNSPECIFIED INGREDIENT
  10. DAILYMULTI-VITAMIN [Concomitant]

REACTIONS (11)
  - Nausea [None]
  - Pain in extremity [None]
  - Vomiting [None]
  - Migraine [None]
  - Myalgia [None]
  - Asthenia [None]
  - Influenza like illness [None]
  - Arthralgia [None]
  - Neck pain [None]
  - Fatigue [None]
  - Hyperhidrosis [None]

NARRATIVE: CASE EVENT DATE: 20161121
